FAERS Safety Report 13200975 (Version 1)
Quarter: 2017Q1

REPORT INFORMATION
  Report Type: Spontaneous
  Country: US (occurrence: US)
  Receive Date: 20170209
  Receipt Date: 20170209
  Transmission Date: 20170428
  Serious: Yes (Hospitalization, Other)
  Sender: FDA-Public Use
  Company Number: US-ZYDUS-013679

PATIENT
  Age: 60 Year
  Sex: Male

DRUGS (3)
  1. LACTOBACILLUS CASEI [Suspect]
     Active Substance: LACTOBACILLUS CASEI
     Indication: PRODUCT USED FOR UNKNOWN INDICATION
     Route: 048
  2. SIROLIMUS. [Suspect]
     Active Substance: SIROLIMUS
     Indication: IMMUNOSUPPRESSANT DRUG THERAPY
     Route: 048
  3. CICLOSPORIN [Suspect]
     Active Substance: CYCLOSPORINE
     Indication: IMMUNOSUPPRESSANT DRUG THERAPY
     Route: 048

REACTIONS (10)
  - Abdominal discomfort [Recovering/Resolving]
  - Intra-abdominal fluid collection [Recovering/Resolving]
  - Kidney enlargement [Recovering/Resolving]
  - Septic shock [Recovering/Resolving]
  - Escherichia infection [Recovering/Resolving]
  - White blood cell count increased [Recovered/Resolved]
  - Lactobacillus infection [Recovering/Resolving]
  - Respiratory failure [Recovering/Resolving]
  - Enterococcal infection [Recovering/Resolving]
  - Pyrexia [Recovered/Resolved]

NARRATIVE: CASE EVENT DATE: 2014
